FAERS Safety Report 24463705 (Version 1)
Quarter: 2024Q4

REPORT INFORMATION
  Report Type: Report from Study
  Country: US (occurrence: US)
  Receive Date: 20241018
  Receipt Date: 20241018
  Transmission Date: 20250115
  Serious: No
  Sender: ROCHE
  Company Number: US-ROCHE-3425119

PATIENT
  Age: 46 Year
  Sex: Female
  Weight: 82.6 kg

DRUGS (28)
  1. XOLAIR [Suspect]
     Active Substance: OMALIZUMAB
     Indication: Urticaria
     Dosage: DATE OF SERVICE: 15/MAY/2020, 12/JUN/2020, 07/JUL/2020, 14/AUG/2020, 10/SEP/2020, 05/OCT/2020, 27/OC
     Route: 058
  2. XOLAIR [Suspect]
     Active Substance: OMALIZUMAB
     Route: 058
     Dates: start: 20200416
  3. XOLAIR [Suspect]
     Active Substance: OMALIZUMAB
     Route: 058
  4. XOLAIR [Suspect]
     Active Substance: OMALIZUMAB
     Route: 058
  5. XOLAIR [Suspect]
     Active Substance: OMALIZUMAB
     Route: 058
  6. XOLAIR [Suspect]
     Active Substance: OMALIZUMAB
     Route: 058
  7. XOLAIR [Suspect]
     Active Substance: OMALIZUMAB
     Route: 058
  8. XOLAIR [Suspect]
     Active Substance: OMALIZUMAB
     Route: 058
  9. XOLAIR [Suspect]
     Active Substance: OMALIZUMAB
     Route: 058
  10. XOLAIR [Suspect]
     Active Substance: OMALIZUMAB
     Route: 058
  11. XOLAIR [Suspect]
     Active Substance: OMALIZUMAB
     Route: 058
  12. XOLAIR [Suspect]
     Active Substance: OMALIZUMAB
     Route: 058
  13. XOLAIR [Suspect]
     Active Substance: OMALIZUMAB
     Route: 058
  14. XOLAIR [Suspect]
     Active Substance: OMALIZUMAB
     Route: 058
  15. LORATADINE [Concomitant]
     Active Substance: LORATADINE
  16. CETIRIZINE HYDROCHLORIDE [Concomitant]
     Active Substance: CETIRIZINE HYDROCHLORIDE
  17. FEXOFENADINE [Concomitant]
     Active Substance: FEXOFENADINE HYDROCHLORIDE
  18. RANITIDINE [Concomitant]
     Active Substance: RANITIDINE
  19. PLAQUENIL [Concomitant]
     Active Substance: HYDROXYCHLOROQUINE SULFATE
  20. PREDNISONE [Concomitant]
     Active Substance: PREDNISONE
  21. CLONAZEPAM [Concomitant]
     Active Substance: CLONAZEPAM
  22. OXYCODONE [Concomitant]
     Active Substance: OXYCODONE
  23. ACETAMINOPHEN [Concomitant]
     Active Substance: ACETAMINOPHEN
  24. LEVOCETIRIZINE HYDROCHLORIDE [Concomitant]
     Active Substance: LEVOCETIRIZINE HYDROCHLORIDE
  25. TRAZODONE [Concomitant]
     Active Substance: TRAZODONE HYDROCHLORIDE
  26. CYMBALTA [Concomitant]
     Active Substance: DULOXETINE HYDROCHLORIDE
  27. OXYCODONE [Concomitant]
     Active Substance: OXYCODONE
  28. AMITIZA [Concomitant]
     Active Substance: LUBIPROSTONE

REACTIONS (8)
  - Off label use [Unknown]
  - Anaemia [Unknown]
  - Depression [Unknown]
  - Arthralgia [Unknown]
  - Hypoxia [Unknown]
  - Malaise [Unknown]
  - Bronchitis chronic [Unknown]
  - Urticaria [Unknown]
